FAERS Safety Report 20001205 (Version 1)
Quarter: 2021Q4

REPORT INFORMATION
  Report Type: Spontaneous
  Country: US (occurrence: US)
  Receive Date: 20211026
  Receipt Date: 20211026
  Transmission Date: 20220303
  Serious: Yes (Hospitalization)
  Sender: FDA-Public Use
  Company Number: None

PATIENT
  Age: 4 Year
  Sex: Female
  Weight: 13.6 kg

DRUGS (3)
  1. CYTARABINE [Suspect]
     Active Substance: CYTARABINE
     Dates: end: 20211021
  2. DAUNORUBICIN [Concomitant]
     Active Substance: DAUNORUBICIN
     Dates: end: 20211021
  3. ZINECARD [Concomitant]
     Active Substance: DEXRAZOXANE HYDROCHLORIDE
     Dates: end: 20211021

REACTIONS (3)
  - Acute respiratory failure [None]
  - Pyrexia [None]
  - Atelectasis [None]

NARRATIVE: CASE EVENT DATE: 20211020
